FAERS Safety Report 19758865 (Version 1)
Quarter: 2021Q3

REPORT INFORMATION
  Report Type: Spontaneous
  Country: NL (occurrence: NL)
  Receive Date: 20210829
  Receipt Date: 20210829
  Transmission Date: 20211014
  Serious: Yes (Disabling)
  Sender: FDA-Public Use
  Company Number: NL-ASTRAZENECA-2021A694418

PATIENT
  Age: 48 Year
  Sex: Female
  Weight: 61 kg

DRUGS (2)
  1. SEROQUEL [Suspect]
     Active Substance: QUETIAPINE FUMARATE
     Indication: PARANOIA
     Dosage: 25 MG25.0MG UNKNOWN
     Route: 048
     Dates: start: 2021, end: 20210813
  2. SEROQUEL [Suspect]
     Active Substance: QUETIAPINE FUMARATE
     Indication: SLEEP DISORDER
     Dosage: 25 MG25.0MG UNKNOWN
     Route: 048
     Dates: start: 2021, end: 20210813

REACTIONS (1)
  - Neurological symptom [Recovering/Resolving]

NARRATIVE: CASE EVENT DATE: 20210813
